FAERS Safety Report 20816886 (Version 1)
Quarter: 2022Q2

REPORT INFORMATION
  Report Type: Spontaneous
  Country: FR (occurrence: FR)
  Receive Date: 20220512
  Receipt Date: 20220512
  Transmission Date: 20220721
  Serious: Yes (Other)
  Sender: FDA-Public Use
  Company Number: FR-MACLEODS PHARMA UK LTD-MAC2022035513

PATIENT
  Age: 31 Year
  Sex: Female
  Weight: 89 kg

DRUGS (1)
  1. LIDOCAINE [Suspect]
     Active Substance: LIDOCAINE
     Indication: Epidural anaesthesia
     Dosage: 0.7 MILLIGRAM/KILOGRAM, SINGLE, INJECTION
     Route: 008

REACTIONS (3)
  - Generalised tonic-clonic seizure [Unknown]
  - Local anaesthetic systemic toxicity [Unknown]
  - Maternal exposure during pregnancy [Unknown]
